FAERS Safety Report 18005876 (Version 2)
Quarter: 2020Q3

REPORT INFORMATION
  Report Type: Spontaneous
  Country: CZ (occurrence: CZ)
  Receive Date: 20200710
  Receipt Date: 20200714
  Transmission Date: 20201103
  Serious: Yes (Other)
  Sender: FDA-Public Use
  Company Number: NVSC2020CZ134978

PATIENT
  Age: 40 Year
  Sex: Female

DRUGS (12)
  1. TRAMADOL. [Suspect]
     Active Substance: TRAMADOL
     Indication: BACK PAIN
     Dosage: 2000 MG QD, GRADUALLY, TOOK A DOSE OF 40 PRESSES OF TRAMADOL GTT METERING PUMP 4 TIMES PER DAY (IE 2
     Route: 048
  2. QUETIAPINE. [Concomitant]
     Active Substance: QUETIAPINE
     Indication: INSOMNIA
  3. CLONAZEPAM. [Suspect]
     Active Substance: CLONAZEPAM
     Indication: PRODUCT USED FOR UNKNOWN INDICATION
     Dosage: DOSAGE IRREGULAR
     Route: 065
  4. DIAZEPAM. [Concomitant]
     Active Substance: DIAZEPAM
     Indication: EPILEPSY
     Dosage: UNK (DECREASED DOSES)
     Route: 065
  5. GABAPENTIN. [Suspect]
     Active Substance: GABAPENTIN
     Dosage: 300 MG, TID
     Route: 048
     Dates: start: 2017
  6. BUPRENORPHINE. [Suspect]
     Active Substance: BUPRENORPHINE
     Indication: DRUG WITHDRAWAL SYNDROME
  7. ALPRAZOLAM. [Suspect]
     Active Substance: ALPRAZOLAM
     Indication: PRODUCT USED FOR UNKNOWN INDICATION
     Dosage: DOSAGE IRREGULAR
     Route: 048
  8. GABAPENTIN. [Suspect]
     Active Substance: GABAPENTIN
     Indication: MOOD SWINGS
     Dosage: 3600 MG, QD
     Route: 048
  9. BUPRENORPHINE. [Suspect]
     Active Substance: BUPRENORPHINE
     Indication: WITHDRAWAL SYNDROME
     Dosage: UNK
     Route: 065
     Dates: start: 201710
  10. ALCOHOL. [Suspect]
     Active Substance: ALCOHOL
     Indication: PRODUCT USED FOR UNKNOWN INDICATION
     Dosage: 2 L, QD
     Route: 065
  11. TRAMADOL. [Suspect]
     Active Substance: TRAMADOL
     Dosage: 40 DF, QD
     Route: 048
     Dates: start: 2005
  12. QUETIAPINE. [Concomitant]
     Active Substance: QUETIAPINE
     Indication: INSOMNIA
     Dosage: 25 MG AT NIGHT
     Route: 065
     Dates: start: 2017

REACTIONS (37)
  - Personality disorder [Unknown]
  - Mood swings [Not Recovered/Not Resolved]
  - Product use in unapproved indication [Unknown]
  - Tension [Recovered/Resolved]
  - Substance dependence [Unknown]
  - Anger [Unknown]
  - Depressed mood [Unknown]
  - Mood altered [Recovered/Resolved]
  - Anxiety [Recovered/Resolved]
  - Condition aggravated [Recovering/Resolving]
  - Decreased appetite [Unknown]
  - Drug withdrawal syndrome [Recovered/Resolved]
  - Disturbance in attention [Recovered/Resolved]
  - Fatigue [Unknown]
  - Drug effect less than expected [Unknown]
  - Chills [Recovered/Resolved]
  - Insomnia [Recovered/Resolved]
  - Amnesia [Unknown]
  - Withdrawal syndrome [Unknown]
  - Epilepsy [Unknown]
  - Therapeutic product effect incomplete [Unknown]
  - Overdose [Recovered/Resolved]
  - Contraindicated product administered [Recovered/Resolved]
  - Drug abuse [Recovered/Resolved]
  - Pain [Recovered/Resolved]
  - Muscle spasms [Recovered/Resolved]
  - Depression [Recovering/Resolving]
  - Crying [Unknown]
  - Hyperhidrosis [Recovered/Resolved]
  - Drug dependence [Unknown]
  - Frustration tolerance decreased [Unknown]
  - Distractibility [Recovering/Resolving]
  - Feeling of body temperature change [Unknown]
  - Impulsive behaviour [Recovering/Resolving]
  - Panic reaction [Recovering/Resolving]
  - Drug ineffective [Unknown]
  - Memory impairment [Recovered/Resolved]

NARRATIVE: CASE EVENT DATE: 2017
